FAERS Safety Report 22854005 (Version 2)
Quarter: 2023Q4

REPORT INFORMATION
  Report Type: Report from Study
  Country: PE (occurrence: PE)
  Receive Date: 20230823
  Receipt Date: 20231031
  Transmission Date: 20240109
  Serious: Yes (Hospitalization, Other)
  Sender: FDA-Public Use
  Company Number: PE-002147023-NVSC2023PE120311

PATIENT
  Age: 72 Year
  Sex: Female

DRUGS (3)
  1. KISQALI [Suspect]
     Active Substance: RIBOCICLIB
     Indication: Breast cancer metastatic
     Dosage: 600 MG, QD
     Route: 048
     Dates: start: 20230104, end: 202310
  2. KISQALI [Suspect]
     Active Substance: RIBOCICLIB
     Indication: Hormone receptor positive breast cancer
  3. FULVESTRANT [Suspect]
     Active Substance: FULVESTRANT
     Indication: Hormone receptor positive breast cancer
     Dosage: UNK
     Route: 065

REACTIONS (11)
  - Benign ovarian tumour [Unknown]
  - Platelet count abnormal [Unknown]
  - Metastases to liver [Unknown]
  - Hepatic failure [Unknown]
  - Skin disorder [Unknown]
  - Amino acid level abnormal [Unknown]
  - White blood cell disorder [Unknown]
  - Haemoglobin abnormal [Unknown]
  - Pruritus [Unknown]
  - Rash [Unknown]
  - Drug resistance [Unknown]

NARRATIVE: CASE EVENT DATE: 20230301
